FAERS Safety Report 5150013-X (Version None)
Quarter: 2006Q4

REPORT INFORMATION
  Report Type: 
  Country: None (occurrence: None)
  Receive Date: 20060918
  Receipt Date: 20060526
  Transmission Date: 20070319
  Serious: Yes (Other)
  Sender: FDA-Public Use
  Company Number: US-JNJFOC-20060506102

PATIENT
  Age: 12 Year
  Sex: Male
  Weight: 54.4316 kg

DRUGS (4)
  1. TOPAMAX [Suspect]
     Indication: HEADACHE
     Dosage: 75 MG,  2 IN 1 DAY, ORAL
     Route: 048
     Dates: start: 20060428
  2. ADVAIR () SERETIDE MITE [Concomitant]
  3. NEXIUM [Concomitant]
  4. CODEINE SUL TAB [Concomitant]

REACTIONS (1)
  - INTRAOCULAR PRESSURE INCREASED [None]
